FAERS Safety Report 10009635 (Version 2)
Quarter: 2014Q1

REPORT INFORMATION
  Report Type: Spontaneous
  Country: US (occurrence: US)
  Receive Date: 20140312
  Receipt Date: 20140312
  Transmission Date: 20141002
  Serious: Yes (Other)
  Sender: FDA-Public Use
  Company Number: US-INCYTE CORPORATION-2012IN001542

PATIENT
  Age: 72 Year
  Sex: Male
  Weight: 77.55 kg

DRUGS (10)
  1. JAKAFI [Suspect]
     Indication: MYELOFIBROSIS
     Dosage: NOT SPECIFIED
     Route: 048
     Dates: start: 201201, end: 20120510
  2. JAKAFI [Suspect]
     Dosage: 15 MG, BID
     Route: 048
     Dates: start: 20120511, end: 20120610
  3. JAKAFI [Suspect]
     Dosage: 10 MG, BID
     Route: 048
     Dates: start: 20120611, end: 20120625
  4. JAKAFI [Suspect]
     Dosage: 7.5 MG, BID (ONE-HALF 15 MG TABLET)
     Route: 048
     Dates: start: 20120702, end: 20120702
  5. JAKAFI [Suspect]
     Dosage: 5 MG, BID
     Route: 048
     Dates: start: 20120703
  6. AVODART [Concomitant]
     Dosage: 0.5 MG, QD
     Route: 048
  7. SYNTHROID [Concomitant]
     Dosage: 0.88 MG, UNK
     Route: 048
  8. HYDROCHLOROTHIAZIDE [Concomitant]
     Dosage: 50 MG, QD
     Route: 048
  9. CENTRUM [Concomitant]
     Dosage: UNK, QD
     Route: 048
  10. BENADRYL [Concomitant]
     Dosage: 25 MG, PRN
     Route: 048

REACTIONS (8)
  - Thrombocytopenia [Unknown]
  - Medication error [Recovered/Resolved]
  - Fatigue [Not Recovered/Not Resolved]
  - Dyspnoea exertional [Not Recovered/Not Resolved]
  - Insomnia [Not Recovered/Not Resolved]
  - Musculoskeletal pain [Not Recovered/Not Resolved]
  - Rash pruritic [Not Recovered/Not Resolved]
  - Weight increased [Not Recovered/Not Resolved]
